FAERS Safety Report 5119390-X (Version None)
Quarter: 2006Q4

REPORT INFORMATION
  Report Type: 
  Country: None (occurrence: None)
  Receive Date: 20061003
  Receipt Date: 20051018
  Transmission Date: 20070319
  Serious: Yes (Hospitalization, Other)
  Sender: FDA-Public Use
  Company Number: US-AVENTIS-200519235GDDC

PATIENT
  Age: 71 Year
  Sex: Male

DRUGS (13)
  1. DOCETAXEL [Suspect]
     Indication: PROSTATE CANCER
     Dates: start: 20050926, end: 20050926
  2. DOCETAXEL [Suspect]
     Dates: start: 20051003, end: 20051003
  3. DOCETAXEL [Suspect]
     Dates: start: 20051010, end: 20051010
  4. CAPECITABINE [Suspect]
     Route: 048
     Dates: start: 20051003, end: 20051009
  5. LASIX [Concomitant]
     Dosage: DOSE: UNK
  6. POTASSIUM [Concomitant]
     Dosage: DOSE: UNK
  7. MSIR [Concomitant]
     Dosage: DOSE: UNK
  8. LIPITOR [Concomitant]
     Dosage: DOSE: UNK
  9. AMBIEN [Concomitant]
     Dosage: DOSE: UNK
  10. PROTONIX [Concomitant]
     Dosage: DOSE: UNK
  11. SENNA [Concomitant]
     Dosage: DOSE: UNK
  12. LOVENOX [Concomitant]
     Dosage: DOSE: UNK
  13. TYLENOL W/ CODEINE NO. 3 [Concomitant]
     Dosage: DOSE: UNK

REACTIONS (9)
  - ANAEMIA [None]
  - ATRIOVENTRICULAR BLOCK SECOND DEGREE [None]
  - BLOOD MAGNESIUM DECREASED [None]
  - BLOOD PHOSPHORUS DECREASED [None]
  - BLOOD POTASSIUM DECREASED [None]
  - DIARRHOEA [None]
  - DIZZINESS [None]
  - NAUSEA [None]
  - VOMITING [None]
